FAERS Safety Report 7068642-5 (Version None)
Quarter: 2010Q4

REPORT INFORMATION
  Report Type: 
  Country: None (occurrence: None)
  Receive Date: 20101027
  Receipt Date: 20101027
  Transmission Date: 20110411
  Serious: No
  Sender: FDA-Public Use
  Company Number: None

PATIENT
  Age: 5 Month
  Sex: Male
  Weight: 7.2576 kg

DRUGS (1)
  1. HYLAND'S TEETHING TABLETS 125 TABLETS HYLAND'S, INC. [Suspect]
     Indication: TEETHING
     Dosage: 2-3 EVER 6 HRS AS NEED PO
     Route: 048
     Dates: start: 20100910, end: 20101022

REACTIONS (2)
  - CONSTIPATION [None]
  - DYSPNOEA [None]
